FAERS Safety Report 4726763-3 (Version None)
Quarter: 2005Q3

REPORT INFORMATION
  Report Type: 
  Country: None (occurrence: None)
  Receive Date: 20050725
  Receipt Date: 20050420
  Transmission Date: 20060218
  Serious: No
  Sender: FDA-Public Use
  Company Number: USA050496202

PATIENT
  Age: 9 Year
  Sex: Female
  Weight: 32 kg

DRUGS (4)
  1. STRATTERA [Suspect]
     Indication: ATTENTION DEFICIT/HYPERACTIVITY DISORDER
     Dosage: 25 MG/1 DAY
     Dates: start: 20000101
  2. ANTIBIOTICS LARGE VARIETY [Concomitant]
  3. XOPENEX [Concomitant]
  4. PREDNISONE [Concomitant]

REACTIONS (2)
  - COUGH [None]
  - WHEEZING [None]
